FAERS Safety Report 8155186-2 (Version None)
Quarter: 2012Q1

REPORT INFORMATION
  Report Type: 
  Country: None (occurrence: None)
  Receive Date: 20120221
  Receipt Date: 20120217
  Transmission Date: 20120608
  Serious: Yes (Death, Hospitalization)
  Sender: FDA-Public Use
  Company Number: US-ASTRAZENECA-2012SE04613

PATIENT
  Age: 22124 Day
  Sex: Female

DRUGS (1)
  1. SEROQUEL [Suspect]
     Route: 048

REACTIONS (6)
  - HYPOKINESIA [None]
  - FEELING ABNORMAL [None]
  - HYPOPHAGIA [None]
  - NON-SMALL CELL LUNG CANCER METASTATIC [None]
  - MALAISE [None]
  - METASTASES TO BONE [None]
